FAERS Safety Report 18078087 (Version 1)
Quarter: 2020Q3

REPORT INFORMATION
  Report Type: Other
  Country: GB (occurrence: GB)
  Receive Date: 20200728
  Receipt Date: 20200728
  Transmission Date: 20201103
  Serious: Yes (Disabling, Other)
  Sender: FDA-Public Use
  Company Number: GB-COVIS PHARMA B.V.-2020COV00304

PATIENT
  Age: 68 Year
  Sex: Male
  Weight: 88 kg

DRUGS (11)
  1. MOMETASONE [Concomitant]
     Active Substance: MOMETASONE
     Dosage: 1 DF, 1X/DAY
     Dates: start: 20200702
  2. CANDESARTAN. [Concomitant]
     Active Substance: CANDESARTAN
     Dosage: 1 DF, 1X/DAY
     Dates: start: 20180822
  3. CAPASAL [Concomitant]
     Dosage: 1 DF, 1X/DAY
     Dates: start: 20200625
  4. SILDENAFIL. [Concomitant]
     Active Substance: SILDENAFIL
     Indication: RAYNAUD^S PHENOMENON
     Dosage: 3 DF, 1X/DAY
     Dates: start: 20191127
  5. MAGNESIUM HYDROXIDE. [Concomitant]
     Active Substance: MAGNESIUM HYDROXIDE
     Dosage: 30?45 MLS MIXED WITH WATER BEFORE BEDTIME
     Dates: start: 20191210
  6. CASSIA SEED [Concomitant]
     Dosage: 2 DF, 1X/DAY
     Dates: start: 20180822
  7. ACETYLSALICYLIC ACID [Concomitant]
     Active Substance: ASPIRIN
     Dosage: 1 DF, 1X/DAY
     Dates: start: 20180822
  8. CETRABEN [Concomitant]
     Active Substance: PARAFFIN
     Indication: PARAPROTEINAEMIA
     Dosage: UNK UNK, AS DIRECTED
     Dates: start: 20200625
  9. CETIRIZINE [Concomitant]
     Active Substance: CETIRIZINE HYDROCHLORIDE
     Dosage: 1 DF, 1X/DAY
     Dates: start: 20180822
  10. OMEPRAZOLE MAGNESIUM. [Suspect]
     Active Substance: OMEPRAZOLE MAGNESIUM
     Dosage: 20 MG, 1X/DAY
     Route: 048
     Dates: start: 20200316
  11. ATORVASTATIN [Concomitant]
     Active Substance: ATORVASTATIN
     Dosage: 1 DF, 1X/DAY
     Dates: start: 20180822

REACTIONS (1)
  - Lichenoid keratosis [Unknown]

NARRATIVE: CASE EVENT DATE: 20200703
